FAERS Safety Report 5656695-8 (Version None)
Quarter: 2008Q1

REPORT INFORMATION
  Report Type: 
  Country: None (occurrence: None)
  Receive Date: 20080306
  Receipt Date: 20080306
  Transmission Date: 20080703
  Serious: No
  Sender: FDA-Public Use
  Company Number: None

PATIENT
  Sex: Female
  Weight: 58.0604 kg

DRUGS (3)
  1. SERTRALINE [Suspect]
     Indication: ANXIETY
     Dosage: 150  ONCE A DAY  PO
     Route: 048
  2. SERTRALINE [Suspect]
     Indication: DEPRESSION
     Dosage: 150  ONCE A DAY  PO
     Route: 048
  3. SERTRALINE [Suspect]
     Indication: PHOBIA
     Dosage: 150  ONCE A DAY  PO
     Route: 048

REACTIONS (3)
  - DEPRESSION [None]
  - INFLUENZA LIKE ILLNESS [None]
  - PHARMACEUTICAL PRODUCT COMPLAINT [None]
